FAERS Safety Report 19643159 (Version 2)
Quarter: 2022Q1

REPORT INFORMATION
  Report Type: Spontaneous
  Country: US (occurrence: US)
  Receive Date: 20210730
  Receipt Date: 20220128
  Transmission Date: 20220423
  Serious: No
  Sender: FDA-Public Use
  Company Number: US-ENDO PHARMACEUTICALS INC-2021-006585

PATIENT
  Sex: Female

DRUGS (2)
  1. QWO [Suspect]
     Active Substance: COLLAGENASE CLOSTRIDIUM HISTOLYTICUM-AAES
     Indication: Cellulite
     Dosage: UNK UNKNOWN, UNKNOWN; SECOND TREATEMNT
     Route: 065
     Dates: start: 20210423
  2. QWO [Suspect]
     Active Substance: COLLAGENASE CLOSTRIDIUM HISTOLYTICUM-AAES
     Dosage: UNK UNKNOWN, UNKNOWN; FIRST TREATEMNT
     Route: 065
     Dates: start: 20210325

REACTIONS (6)
  - Haemosiderin stain [Not Recovered/Not Resolved]
  - Cellulite [Unknown]
  - Contusion [Not Recovered/Not Resolved]
  - Nodule [Unknown]
  - Skin discolouration [Unknown]
  - Skin hyperpigmentation [Not Recovered/Not Resolved]

NARRATIVE: CASE EVENT DATE: 20210101
